FAERS Safety Report 16958490 (Version 2)
Quarter: 2019Q4

REPORT INFORMATION
  Report Type: Spontaneous
  Country: US (occurrence: US)
  Receive Date: 20191024
  Receipt Date: 20191125
  Transmission Date: 20200122
  Serious: No
  Sender: FDA-Public Use
  Company Number: US-NXDC-GLE-0047-2019

PATIENT
  Age: 64 Year
  Sex: Female
  Weight: 60.9 kg

DRUGS (3)
  1. GLEOLAN [Suspect]
     Active Substance: AMINOLEVULINIC ACID HYDROCHLORIDE
     Indication: GLIOMA
     Dosage: 42.7 ML / 1280 MG
     Dates: start: 20190927, end: 20190927
  2. DEXAMETHASONE. [Concomitant]
     Active Substance: DEXAMETHASONE
     Dosage: 4MG Q6H
  3. KEPPRA [Concomitant]
     Active Substance: LEVETIRACETAM
     Dosage: 500MG BID

REACTIONS (2)
  - Device operational issue [Unknown]
  - Drug ineffective [Unknown]

NARRATIVE: CASE EVENT DATE: 20190927
